FAERS Safety Report 22654967 (Version 1)
Quarter: 2023Q2

REPORT INFORMATION
  Report Type: Spontaneous
  Country: US (occurrence: None)
  Receive Date: 20230628
  Receipt Date: 20230628
  Transmission Date: 20230722
  Serious: No
  Sender: FDA-Public Use
  Company Number: None

PATIENT
  Age: 68 Year
  Sex: Female
  Weight: 87.54 kg

DRUGS (1)
  1. SKYRIZI [Suspect]
     Active Substance: RISANKIZUMAB-RZAA
     Indication: Psoriatic arthropathy
     Dosage: INJECT 150MG (1 PEN) SUBCUTANEOUSLY  AT WEEK 0 AND WEEK 4 AS DIRECTED?
     Route: 058
     Dates: start: 202203

REACTIONS (2)
  - Hip arthroplasty [None]
  - Product use issue [None]
